FAERS Safety Report 13315362 (Version 1)
Quarter: 2017Q1

REPORT INFORMATION
  Report Type: Spontaneous
  Country: US (occurrence: US)
  Receive Date: 20170309
  Receipt Date: 20170309
  Transmission Date: 20170428
  Serious: No
  Sender: FDA-Public Use
  Company Number: US-BAUSCH-BL-2016-013501

PATIENT
  Sex: Female

DRUGS (1)
  1. EDECRIN [Suspect]
     Active Substance: ETHACRYNIC ACID
     Indication: FLUID RETENTION
     Route: 065

REACTIONS (1)
  - Joint swelling [Unknown]
